FAERS Safety Report 6241885-6 (Version None)
Quarter: 2009Q2

REPORT INFORMATION
  Report Type: 
  Country: None (occurrence: None)
  Receive Date: 20090622
  Receipt Date: 20090609
  Transmission Date: 20091009
  Serious: Yes (Other)
  Sender: FDA-Public Use
  Company Number: 2009AP002011

PATIENT
  Age: 48 Year

DRUGS (15)
  1. PREDNISOLONE [Suspect]
     Indication: IMMUNOSUPPRESSION
     Dosage: 20 MG; QD; 5 MG QD
  2. MYCOPHENOLATE MOFETIL [Suspect]
     Indication: IMMUNOSUPPRESSION
     Dosage: QD
  3. TACROLIMUS [Suspect]
     Indication: IMMUNOSUPPRESSION
     Dosage: TOP
     Route: 061
  4. ANTITHYMOCYTE IMMUNOGLOBULIN [Suspect]
     Indication: IMMUNOSUPPRESSION
     Dosage: 1.5 MG/KG
  5. METHYLPREDNISOLONE [Suspect]
     Indication: IMMUNOSUPPRESSION
     Dosage: 500 MG
  6. SIROLIMUS [Suspect]
     Indication: IMMUNOSUPPRESSION
  7. CIDOFOVIR [Suspect]
     Indication: CYTOMEGALOVIRUS INFECTION
  8. FOSCARNET [Suspect]
     Indication: CYTOMEGALOVIRUS INFECTION
  9. PIPERACILLIN [Concomitant]
  10. TAZOBACTAM [Concomitant]
  11. SULFAMETHOXAZOLE AND TRIMETHOPRIM [Concomitant]
  12. TRIMETHOPRIM [Concomitant]
  13. IMMUNE GLOBULIN INTRAVENOUS (HUMAN) [Concomitant]
  14. CYTOMEGALOVIRUS [Concomitant]
  15. GANCICLOVIR [Concomitant]

REACTIONS (7)
  - CYTOMEGALOVIRUS INFECTION [None]
  - DIABETES MELLITUS [None]
  - DRUG INTERACTION [None]
  - HYPERLIPIDAEMIA [None]
  - NASOPHARYNGITIS [None]
  - NEPHROPATHY TOXIC [None]
  - TRANSPLANT REJECTION [None]
